FAERS Safety Report 9323529 (Version 1)
Quarter: 2013Q2

REPORT INFORMATION
  Report Type: Spontaneous
  Country: US (occurrence: US)
  Receive Date: 20130603
  Receipt Date: 20130603
  Transmission Date: 20140414
  Serious: No
  Sender: FDA-Public Use
  Company Number: US-B.I. PHARMACEUTICALS,INC./RIDGEFIELD-2012-BP-26633BP

PATIENT
  Age: 66 Year
  Sex: Female

DRUGS (3)
  1. MICARDIS [Suspect]
     Indication: HYPERTENSION
     Dosage: 40 MG
     Route: 048
     Dates: start: 20121018, end: 20130429
  2. MICARDIS [Suspect]
     Dosage: 20 MG
     Route: 048
     Dates: start: 20130429
  3. VITAMIN D3 [Concomitant]
     Indication: VITAMIN D DECREASED
     Dosage: 5000 U
     Route: 048

REACTIONS (3)
  - Pain [Not Recovered/Not Resolved]
  - Pyrexia [Not Recovered/Not Resolved]
  - Vitamin D decreased [Not Recovered/Not Resolved]
